FAERS Safety Report 13281682 (Version 2)
Quarter: 2017Q1

REPORT INFORMATION
  Report Type: Spontaneous
  Country: IT (occurrence: IT)
  Receive Date: 20170301
  Receipt Date: 20170307
  Transmission Date: 20170428
  Serious: Yes (Hospitalization, Other)
  Sender: FDA-Public Use
  Company Number: IT-AUROBINDO-AUR-APL-2017-30398

PATIENT
  Age: 59 Year
  Sex: Male

DRUGS (5)
  1. METFORMIN [Suspect]
     Active Substance: METFORMIN HYDROCHLORIDE
     Indication: DIABETES MELLITUS
     Route: 065
  2. ATENOLOL. [Concomitant]
     Active Substance: ATENOLOL
     Indication: HYPERTENSION
     Route: 065
  3. CHLORTALIDONE [Concomitant]
     Active Substance: CHLORTHALIDONE
     Indication: HYPERTENSION
     Route: 065
  4. IMIPENEM+CILASTATIN SODIUM [Suspect]
     Active Substance: CILASTATIN SODIUM\IMIPENEM
     Indication: ANTIBIOTIC THERAPY
     Route: 065
  5. BECLOMETASONE [Concomitant]
     Active Substance: BECLOMETHASONE DIPROPIONATE
     Indication: CROHN^S DISEASE
     Route: 065

REACTIONS (6)
  - Hyponatraemia [Recovered/Resolved]
  - Loss of consciousness [Recovered/Resolved]
  - Abdominal pain [Recovered/Resolved]
  - Cerebrovascular accident [Recovered/Resolved]
  - Metabolic acidosis [Recovered/Resolved]
  - Hypocalcaemia [Recovered/Resolved]
